FAERS Safety Report 16682962 (Version 1)
Quarter: 2019Q3

REPORT INFORMATION
  Report Type: Spontaneous
  Country: US (occurrence: US)
  Receive Date: 20190808
  Receipt Date: 20190808
  Transmission Date: 20191004
  Serious: Yes (Other)
  Sender: FDA-Public Use
  Company Number: PHHY2019US180129

PATIENT
  Age: 30 Year
  Sex: Female

DRUGS (1)
  1. IMATINIB. [Suspect]
     Active Substance: IMATINIB MESYLATE
     Indication: CHORDOMA
     Dosage: UNK
     Route: 065
     Dates: start: 201704

REACTIONS (3)
  - Recurrent cancer [Unknown]
  - Chordoma [Unknown]
  - Product use in unapproved indication [Unknown]
